FAERS Safety Report 7153072-8 (Version None)
Quarter: 2010Q4

REPORT INFORMATION
  Report Type: 
  Country: None (occurrence: None)
  Receive Date: 20101213
  Receipt Date: 20101205
  Transmission Date: 20110411
  Serious: Yes (Hospitalization, Other)
  Sender: FDA-Public Use
  Company Number: US-AMGEN-USASP2010007989

PATIENT

DRUGS (2)
  1. ENBREL [Suspect]
     Indication: RHEUMATOID ARTHRITIS
     Dosage: 50 MG, QWK
     Dates: start: 19990101, end: 20091201
  2. METHOTREXATE [Concomitant]

REACTIONS (6)
  - DEMYELINATION [None]
  - DIZZINESS [None]
  - HYPOAESTHESIA FACIAL [None]
  - MUSCLE TWITCHING [None]
  - OPTIC NEURITIS [None]
  - THERAPEUTIC RESPONSE DECREASED [None]
